FAERS Safety Report 7499958-6 (Version None)
Quarter: 2011Q2

REPORT INFORMATION
  Report Type: 
  Country: None (occurrence: None)
  Receive Date: 20110524
  Receipt Date: 20110512
  Transmission Date: 20111010
  Serious: Yes (Hospitalization)
  Sender: FDA-Public Use
  Company Number: FI-ASTRAZENECA-2011SE27619

PATIENT
  Age: 10947 Day
  Sex: Female

DRUGS (19)
  1. SEROQUEL XR [Suspect]
     Indication: SCHIZOPHRENIA
     Route: 048
     Dates: end: 20110321
  2. RATIOGRASTIM [Concomitant]
     Dosage: 30 MIU/05 ML
  3. QUETIAPINE [Suspect]
     Route: 065
     Dates: start: 20110310, end: 20110316
  4. LORAZEPAM [Concomitant]
     Route: 048
  5. DUPHALAC [Concomitant]
     Dosage: 667 MG/ML
  6. PROPRAL [Concomitant]
  7. DEPRAKINE [Concomitant]
  8. DIAPAM [Concomitant]
  9. PERATSIN [Concomitant]
     Indication: SCHIZOPHRENIA
     Route: 048
     Dates: start: 20110310, end: 20110321
  10. LORAZEPAM [Concomitant]
     Route: 048
  11. PERATSIN [Concomitant]
     Indication: PSYCHOTIC DISORDER
     Route: 048
     Dates: start: 20110310, end: 20110321
  12. LEVOZIN [Concomitant]
     Indication: INSOMNIA
     Route: 048
     Dates: start: 20110310, end: 20110318
  13. LAXORIN [Concomitant]
     Route: 048
  14. ZIPRASIDONE HCL [Concomitant]
     Route: 048
  15. ATARAX [Concomitant]
     Route: 048
  16. VALPROIC ACID [Suspect]
     Indication: AFFECT LABILITY
     Route: 048
     Dates: end: 20110322
  17. PEGORION [Concomitant]
     Route: 048
  18. COLON SOFT [Concomitant]
  19. VALPROIC ACID [Suspect]
     Indication: PSYCHOTIC DISORDER
     Route: 048
     Dates: end: 20110322

REACTIONS (1)
  - GRANULOCYTOPENIA [None]
